FAERS Safety Report 9403778 (Version 1)
Quarter: 2013Q3

REPORT INFORMATION
  Report Type: Spontaneous
  Country: GB (occurrence: None)
  Receive Date: 20130712
  Receipt Date: 20130712
  Transmission Date: 20140515
  Serious: Yes (Hospitalization)
  Sender: FDA-Public Use
  Company Number: GER/UKI/13/0030413

PATIENT
  Age: 93 Year
  Sex: Female

DRUGS (3)
  1. DONEPEZIL (DONEPEZIL) [Suspect]
     Indication: DEMENTIA
     Route: 048
  2. BENDROFLUMETHIAZIDE (BENDROFLUMETHIAZIDE) [Concomitant]
  3. SIMVASTATIN (SIMVASTATIN) [Concomitant]

REACTIONS (2)
  - Electrocardiogram QT prolonged [None]
  - Atrioventricular block first degree [None]
